FAERS Safety Report 9309806 (Version 1)
Quarter: 2013Q2

REPORT INFORMATION
  Report Type: Spontaneous
  Country: US (occurrence: US)
  Receive Date: 20130525
  Receipt Date: 20130525
  Transmission Date: 20140414
  Serious: No
  Sender: FDA-Public Use
  Company Number: US201205005321

PATIENT
  Age: 53 Year
  Sex: Male

DRUGS (5)
  1. BYDUREON [Suspect]
     Indication: TYPE 2 DIABETES MELLITUS
     Route: 058
     Dates: start: 20120507
  2. METFORMIN [Concomitant]
     Indication: TYPE 2 DIABETES MELLITUS
     Route: 048
  3. GLYBURIDE [Concomitant]
     Indication: TYPE 2 DIABETES MELLITUS
     Route: 048
  4. JANUVIA [Concomitant]
     Indication: TYPE 2 DIABETES MELLITUS
  5. HUMALOG [Concomitant]

REACTIONS (7)
  - Injection site mass [Unknown]
  - Drug effect decreased [Unknown]
  - Off label use [Unknown]
  - Blood glucose increased [Not Recovered/Not Resolved]
  - Injection site haemorrhage [Unknown]
  - Underdose [Not Recovered/Not Resolved]
  - Injection site pain [Unknown]
